FAERS Safety Report 8958785 (Version 2)
Quarter: 2016Q1

REPORT INFORMATION
  Report Type: Spontaneous
  Country: US (occurrence: US)
  Receive Date: 20121212
  Receipt Date: 20160111
  Transmission Date: 20160526
  Serious: Yes (Death, Hospitalization, Disabling, Other)
  Sender: FDA-Public Use
  Company Number: US-009507513-1111USA03003

PATIENT
  Sex: Female

DRUGS (6)
  1. ALENDRONATE SODIUM. [Suspect]
     Active Substance: ALENDRONATE SODIUM
     Indication: OSTEOPOROSIS PROPHYLAXIS
  2. ALENDRONATE SODIUM. [Suspect]
     Active Substance: ALENDRONATE SODIUM
     Indication: OSTEOPOROSIS
     Dosage: 70 MG, UNK
     Route: 048
     Dates: start: 20080221, end: 20100102
  3. ALENDRONATE SODIUM. [Suspect]
     Active Substance: ALENDRONATE SODIUM
     Indication: OSTEOPOROSIS PROPHYLAXIS
  4. FOSAMAX [Suspect]
     Active Substance: ALENDRONATE SODIUM
     Indication: OSTEOPOROSIS
     Dosage: 70 MG, UNK
     Route: 048
     Dates: start: 1999, end: 20071215
  5. ALENDRONATE SODIUM. [Suspect]
     Active Substance: ALENDRONATE SODIUM
     Indication: OSTEOPOROSIS
     Dosage: 70 MG, UNK
     Route: 048
     Dates: start: 20100201, end: 20100616
  6. FOSAMAX [Suspect]
     Active Substance: ALENDRONATE SODIUM
     Indication: OSTEOPOROSIS PROPHYLAXIS

REACTIONS (57)
  - Peripheral swelling [Unknown]
  - Staphylococcal infection [Unknown]
  - Cardiac failure congestive [Unknown]
  - Weight decreased [Unknown]
  - Mental disorder [Recovered/Resolved]
  - Steroid therapy [Unknown]
  - Urinary tract infection [Recovering/Resolving]
  - Carpal tunnel syndrome [Unknown]
  - Oedema peripheral [Unknown]
  - Vitamin D deficiency [Unknown]
  - Calcium deficiency [Unknown]
  - Rheumatoid arthritis [Not Recovered/Not Resolved]
  - Pneumonia [Unknown]
  - Death [Fatal]
  - Injury [Unknown]
  - Productive cough [Unknown]
  - Hypertension [Unknown]
  - Delirium [Recovered/Resolved]
  - Hypokalaemia [Unknown]
  - Femur fracture [Not Recovered/Not Resolved]
  - Blood cholesterol increased [Unknown]
  - Spinal osteoarthritis [Not Recovered/Not Resolved]
  - Spinal osteoarthritis [Not Recovered/Not Resolved]
  - Debridement [Unknown]
  - Adverse event [Unknown]
  - Angiopathy [Unknown]
  - Gastritis [Unknown]
  - Device failure [Unknown]
  - Pneumonia [Recovered/Resolved]
  - Anxiety [Unknown]
  - Deep vein thrombosis [Unknown]
  - Drug hypersensitivity [Unknown]
  - Low turnover osteopathy [Not Recovered/Not Resolved]
  - Asthma [Unknown]
  - Pulmonary embolism [Unknown]
  - Hypoalbuminaemia [Unknown]
  - High frequency ablation [Unknown]
  - Bronchospasm [Unknown]
  - Pneumonia [Recovering/Resolving]
  - Adverse drug reaction [Unknown]
  - Hypertension [Unknown]
  - Asthma [Unknown]
  - Arthropathy [Not Recovered/Not Resolved]
  - Bradycardia [Unknown]
  - Medical device removal [Unknown]
  - Rhinitis allergic [Unknown]
  - Electrolyte substitution therapy [Recovered/Resolved]
  - Hypoxia [Unknown]
  - Generalised oedema [Recovering/Resolving]
  - Transfusion [Unknown]
  - Rash [Unknown]
  - Sepsis [Unknown]
  - Wound [Not Recovered/Not Resolved]
  - Carpal tunnel decompression [Unknown]
  - Depression [Unknown]
  - Inflammation [Unknown]
  - Gastroenteritis Escherichia coli [Recovering/Resolving]

NARRATIVE: CASE EVENT DATE: 1999
